FAERS Safety Report 20308449 (Version 3)
Quarter: 2022Q2

REPORT INFORMATION
  Report Type: Spontaneous
  Country: US (occurrence: None)
  Receive Date: 20220107
  Receipt Date: 20220405
  Transmission Date: 20220720
  Serious: Yes (Death)
  Sender: FDA-Public Use
  Company Number: US-ROCHE-2997473

PATIENT
  Age: 69 Year
  Sex: Female

DRUGS (3)
  1. XOLAIR [Suspect]
     Active Substance: OMALIZUMAB
     Indication: Asthma
     Dosage: (STRENGTH: 150MG/ML)
     Route: 058
     Dates: start: 201709, end: 20211014
  2. XOLAIR [Suspect]
     Active Substance: OMALIZUMAB
  3. XOLAIR [Suspect]
     Active Substance: OMALIZUMAB

REACTIONS (5)
  - Death [Fatal]
  - Respiratory failure [Fatal]
  - Cardiac arrest [Fatal]
  - Brain injury [Fatal]
  - Arrhythmia [Fatal]

NARRATIVE: CASE EVENT DATE: 20211014
